FAERS Safety Report 10161319 (Version 2)
Quarter: 2014Q2

REPORT INFORMATION
  Report Type: Report from Study
  Country: BR (occurrence: BR)
  Receive Date: 20140509
  Receipt Date: 20140509
  Transmission Date: 20141212
  Serious: Yes (Hospitalization)
  Sender: FDA-Public Use
  Company Number: BR-ROCHE-1344948

PATIENT
  Sex: Female
  Weight: 86 kg

DRUGS (10)
  1. ACTEMRA [Suspect]
     Indication: RHEUMATOID ARTHRITIS
     Route: 065
     Dates: start: 20131120
  2. METHOTREXATE [Suspect]
     Indication: RHEUMATOID ARTHRITIS
     Route: 065
  3. PREDSIM [Concomitant]
  4. FOLIC ACID [Concomitant]
  5. TECNOMET [Concomitant]
  6. MAREVAN [Concomitant]
  7. TOPIRAMATE [Concomitant]
     Indication: MIGRAINE
  8. LEVOTHYROXINE [Concomitant]
  9. OMEPRAZOLE [Concomitant]
  10. CITALOPRAM [Concomitant]

REACTIONS (3)
  - Hypercoagulation [Recovering/Resolving]
  - Alopecia [Not Recovered/Not Resolved]
  - Drug dose omission [Unknown]
